FAERS Safety Report 11594246 (Version 2)
Quarter: 2015Q4

REPORT INFORMATION
  Report Type: Spontaneous
  Country: US (occurrence: US)
  Receive Date: 20151005
  Receipt Date: 20151007
  Transmission Date: 20160304
  Serious: No
  Sender: FDA-Public Use
  Company Number: US-TEVA-598720USA

PATIENT
  Sex: Female

DRUGS (2)
  1. FORADIL [Concomitant]
     Active Substance: FORMOTEROL FUMARATE
     Indication: ASTHMA
  2. PROAIR HFA [Suspect]
     Active Substance: ALBUTEROL SULFATE
     Indication: ASTHMA
     Route: 055
     Dates: start: 201505

REACTIONS (8)
  - Fatigue [Unknown]
  - Vision blurred [Unknown]
  - Asthenia [Unknown]
  - Headache [Unknown]
  - Palpitations [Unknown]
  - Dry mouth [Unknown]
  - Drug ineffective [Unknown]
  - Pain in extremity [Unknown]
